FAERS Safety Report 4534878-8 (Version None)
Quarter: 2004Q4

REPORT INFORMATION
  Report Type: 
  Country: None (occurrence: None)
  Receive Date: 20041222
  Receipt Date: 20040604
  Transmission Date: 20050328
  Serious: No
  Sender: FDA-Public Use
  Company Number: US-BRISTOL-MYERS SQUIBB COMPANY-12606828

PATIENT
  Age: 60 Year
  Sex: Female
  Weight: 59 kg

DRUGS (7)
  1. PRAVACHOL [Suspect]
     Indication: CORONARY ARTERIAL STENT INSERTION
     Dosage: INITIATED AT 10 MG/DAY IN DEC-03; INCREASED TO 20 MG/DAY ON 17-JAN-03; THEN INCREASED TO 40 MG/DAY
     Route: 048
     Dates: start: 20040517
  2. DIOVAN [Concomitant]
  3. LASIX [Concomitant]
  4. SYNTHROID [Concomitant]
  5. PLAVIX [Concomitant]
  6. ECOTRIN [Concomitant]
  7. CARDIZEM [Concomitant]

REACTIONS (3)
  - FATIGUE [None]
  - INFLUENZA LIKE ILLNESS [None]
  - MYALGIA [None]
